FAERS Safety Report 6402016-2 (Version None)
Quarter: 2009Q4

REPORT INFORMATION
  Report Type: 
  Country: None (occurrence: None)
  Receive Date: 20091015
  Receipt Date: 20091008
  Transmission Date: 20100525
  Serious: Yes (Hospitalization)
  Sender: FDA-Public Use
  Company Number: US-RB-020107-09

PATIENT
  Age: 26 Year
  Sex: Male

DRUGS (1)
  1. SUBOXONE [Suspect]
     Route: 060
     Dates: start: 20090828

REACTIONS (9)
  - BRONCHITIS [None]
  - CONSTIPATION [None]
  - DRUG DEPENDENCE [None]
  - EUPHORIC MOOD [None]
  - HEADACHE [None]
  - INSOMNIA [None]
  - PNEUMONIA [None]
  - PSYCHOSEXUAL DISORDER [None]
  - RIB FRACTURE [None]
